FAERS Safety Report 17511691 (Version 1)
Quarter: 2020Q1

REPORT INFORMATION
  Report Type: Spontaneous
  Country: US (occurrence: US)
  Receive Date: 20200307
  Receipt Date: 20200307
  Transmission Date: 20200409
  Serious: No
  Sender: FDA-Public Use
  Company Number: US-TEVA-2020-US-1198254

PATIENT
  Sex: Female

DRUGS (2)
  1. CLONAZEPAM UNKNOWN [Suspect]
     Active Substance: CLONAZEPAM
     Indication: ANXIETY
     Route: 065
  2. CLONAZEPAM UNKNOWN [Suspect]
     Active Substance: CLONAZEPAM
     Indication: AGORAPHOBIA

REACTIONS (1)
  - Adverse drug reaction [Unknown]
